FAERS Safety Report 17115781 (Version 1)
Quarter: 2019Q4

REPORT INFORMATION
  Report Type: Spontaneous
  Country: US (occurrence: US)
  Receive Date: 20191204
  Receipt Date: 20191204
  Transmission Date: 20200122
  Serious: Yes (Disabling)
  Sender: FDA-Public Use
  Company Number: None

PATIENT
  Age: 16 Year
  Sex: Male
  Weight: 42.75 kg

DRUGS (9)
  1. OCC METAMUCIL [Concomitant]
  2. GABAPENTIN. [Concomitant]
     Active Substance: GABAPENTIN
  3. FIBERCON [Concomitant]
     Active Substance: CALCIUM POLYCARBOPHIL
  4. PROZAC 40 MG [Concomitant]
  5. VITAMIN C [Concomitant]
     Active Substance: ASCORBIC ACID
  6. BOTOX [Suspect]
     Active Substance: ONABOTULINUMTOXINA
     Indication: URINARY INCONTINENCE
     Dosage: ?          OTHER ROUTE:INJECTED INTO BLADDER AS PER DESCRIPTION?
     Dates: start: 20190611, end: 20191001
  7. BISACODYL TABLET [Concomitant]
  8. BACLOFEN. [Concomitant]
     Active Substance: BACLOFEN
  9. METHENAMINE [Concomitant]
     Active Substance: METHENAMINE

REACTIONS (2)
  - Asthenia [None]
  - Grip strength decreased [None]

NARRATIVE: CASE EVENT DATE: 20191016
